FAERS Safety Report 4688140-3 (Version None)
Quarter: 2005Q2

REPORT INFORMATION
  Report Type: 
  Country: None (occurrence: None)
  Receive Date: 20050609
  Receipt Date: 20050601
  Transmission Date: 20051028
  Serious: Yes (Other)
  Sender: FDA-Public Use
  Company Number: US-2005-009392

PATIENT
  Sex: Female

DRUGS (2)
  1. CLIMARA [Suspect]
     Dosage: 0.375MG/D, CONT, TRANSDERMAL
     Route: 062
     Dates: end: 20050501
  2. SYNTHROID [Concomitant]

REACTIONS (6)
  - ANGIONEUROTIC OEDEMA [None]
  - ARTHRALGIA [None]
  - DYSARTHRIA [None]
  - MUSCLE SPASMS [None]
  - PARAESTHESIA ORAL [None]
  - PHARMACEUTICAL PRODUCT COMPLAINT [None]
